FAERS Safety Report 8832883 (Version 1)
Quarter: 2012Q4

REPORT INFORMATION
  Report Type: 
  Country: US (occurrence: None)
  Receive Date: 20121009
  Receipt Date: 20121009
  Transmission Date: 20130627
  Serious: No
  Sender: FDA-Public Use
  Company Number: None

PATIENT
  Sex: Female
  Weight: 69.3 kg

DRUGS (1)
  1. ZOMETA [Suspect]
     Dates: start: 20090803

REACTIONS (2)
  - Osteonecrosis of jaw [None]
  - Wisdom teeth removal [None]
